FAERS Safety Report 24532285 (Version 2)
Quarter: 2024Q4

REPORT INFORMATION
  Report Type: Spontaneous
  Country: US (occurrence: US)
  Receive Date: 20241022
  Receipt Date: 20241022
  Transmission Date: 20250115
  Serious: Yes (Death)
  Sender: ROCHE
  Company Number: US-ROCHE-10000109197

PATIENT

DRUGS (15)
  1. PERJETA [Suspect]
     Active Substance: PERTUZUMAB
     Indication: Product used for unknown indication
     Route: 065
  2. HERCEPTIN [Suspect]
     Active Substance: TRASTUZUMAB
     Indication: Product used for unknown indication
     Route: 065
  3. DOCETAXEL [Concomitant]
     Active Substance: DOCETAXEL
     Route: 065
  4. CARBOPLATIN [Concomitant]
     Active Substance: CARBOPLATIN
     Route: 065
  5. DEXAMETHASONE [Concomitant]
     Active Substance: DEXAMETHASONE
     Route: 065
  6. COMPAZINE [Concomitant]
     Active Substance: PROCHLORPERAZINE MALEATE
     Route: 065
  7. LEVOTHYROXINE [Concomitant]
     Active Substance: LEVOTHYROXINE
     Route: 065
  8. ROSUVASTATIN [Concomitant]
     Active Substance: ROSUVASTATIN
     Route: 065
  9. LOSARTAN [Concomitant]
     Active Substance: LOSARTAN
     Route: 065
  10. MAGNESIUM [Concomitant]
     Active Substance: MAGNESIUM
     Route: 065
  11. POTASSIUM [Concomitant]
     Active Substance: POTASSIUM
     Route: 065
  12. ONDANSETRON [Concomitant]
     Active Substance: ONDANSETRON
     Route: 065
  13. ALUMINIUM HYDROXIDE GEL, DRIED;MAGNESIUM CARBONATE [Concomitant]
     Route: 065
  14. ESCITALOPRAM [Concomitant]
     Active Substance: ESCITALOPRAM OXALATE
     Route: 065
  15. BUPROPION [Concomitant]
     Active Substance: BUPROPION
     Route: 065

REACTIONS (4)
  - Depression [Fatal]
  - Anxiety [Fatal]
  - Suicidal ideation [Fatal]
  - Completed suicide [Fatal]

NARRATIVE: CASE EVENT DATE: 20241015
